FAERS Safety Report 11045322 (Version 1)
Quarter: 2015Q2

REPORT INFORMATION
  Report Type: Spontaneous
  Country: GB (occurrence: GB)
  Receive Date: 20150417
  Receipt Date: 20150417
  Transmission Date: 20150821
  Serious: Yes (Disabling, Other)
  Sender: FDA-Public Use
  Company Number: GB-BAYER-2015-118283

PATIENT
  Age: 19 Year
  Sex: Female
  Weight: 56 kg

DRUGS (2)
  1. LEVOTHYROXIN [Concomitant]
     Active Substance: LEVOTHYROXINE
  2. CIPROFLOXACIN. [Suspect]
     Active Substance: CIPROFLOXACIN
     Indication: URINARY TRACT INFECTION
     Dosage: 500 MG, QD
     Route: 048
     Dates: start: 20100326, end: 20100328

REACTIONS (5)
  - Anal fissure [Recovering/Resolving]
  - Constipation [Recovered/Resolved]
  - Abnormal dreams [Recovered/Resolved]
  - Paranoia [Recovered/Resolved]
  - Tendonitis [Recovered/Resolved]

NARRATIVE: CASE EVENT DATE: 20100326
